FAERS Safety Report 6457659-7 (Version None)
Quarter: 2009Q4

REPORT INFORMATION
  Report Type: 
  Country: None (occurrence: None)
  Receive Date: 20091125
  Receipt Date: 20091120
  Transmission Date: 20100525
  Serious: Yes (Life-Threatening)
  Sender: FDA-Public Use
  Company Number: GB-TEVA-216104ISR

PATIENT
  Age: 68 Year
  Weight: 70 kg

DRUGS (1)
  1. AMIODARONE HCL [Suspect]
     Indication: VENTRICULAR TACHYCARDIA
     Route: 048
     Dates: start: 20060717, end: 20061124

REACTIONS (3)
  - ANXIETY [None]
  - DEPRESSION SUICIDAL [None]
  - HYPOTHYROIDISM [None]
